FAERS Safety Report 18556369 (Version 1)
Quarter: 2020Q4

REPORT INFORMATION
  Report Type: Report from Study
  Country: IT (occurrence: IT)
  Receive Date: 20201128
  Receipt Date: 20201128
  Transmission Date: 20210114
  Serious: Yes (Hospitalization)
  Sender: FDA-Public Use
  Company Number: IT-ACCORD-209360

PATIENT
  Age: 83 Year
  Sex: Male

DRUGS (5)
  1. CLOPIDOGREL [Suspect]
     Active Substance: CLOPIDOGREL BISULFATE
     Indication: PRODUCT USED FOR UNKNOWN INDICATION
     Dates: start: 20200101, end: 20201101
  2. METOPROLOL. [Concomitant]
     Active Substance: METOPROLOL
  3. CARDIOASPIRIN [Suspect]
     Active Substance: ASPIRIN
     Indication: PRODUCT USED FOR UNKNOWN INDICATION
     Dates: start: 20200101, end: 20201101
  4. TORVAST [Concomitant]
     Active Substance: ATORVASTATIN
  5. KARVEA [Concomitant]
     Active Substance: IRBESARTAN

REACTIONS (2)
  - Anaemia [Not Recovered/Not Resolved]
  - Rectal haemorrhage [Not Recovered/Not Resolved]

NARRATIVE: CASE EVENT DATE: 20201101
